FAERS Safety Report 19711241 (Version 7)
Quarter: 2021Q4

REPORT INFORMATION
  Report Type: Spontaneous
  Country: VN (occurrence: VN)
  Receive Date: 20210817
  Receipt Date: 20211025
  Transmission Date: 20220303
  Serious: Yes (Death, Hospitalization, Other)
  Sender: FDA-Public Use
  Company Number: VN-SA-SAC20210812000574

PATIENT
  Age: 2 Year
  Sex: Female

DRUGS (1)
  1. MYOZYME [Suspect]
     Active Substance: ALGLUCOSIDASE ALFA
     Indication: Glycogen storage disease type II
     Dosage: 20 MG/KG
     Route: 041
     Dates: start: 20181024, end: 20201019

REACTIONS (3)
  - Pneumonia [Fatal]
  - Disease progression [Fatal]
  - Hospitalisation [Unknown]

NARRATIVE: CASE EVENT DATE: 20201005
